FAERS Safety Report 16192751 (Version 1)
Quarter: 2019Q2

REPORT INFORMATION
  Report Type: Spontaneous
  Country: ES (occurrence: ES)
  Receive Date: 20190412
  Receipt Date: 20190412
  Transmission Date: 20190711
  Serious: Yes (Other)
  Sender: FDA-Public Use
  Company Number: PHHY2019ES082426

PATIENT
  Age: 55 Year
  Sex: Male

DRUGS (25)
  1. PARACETAMOL [Suspect]
     Active Substance: ACETAMINOPHEN
     Indication: NECK PAIN
     Dosage: 1 G, Q8H
     Route: 065
     Dates: start: 2015, end: 201709
  2. PARACETAMOL [Suspect]
     Active Substance: ACETAMINOPHEN
     Indication: MUSCLE CONTRACTURE
     Dosage: UNK
     Route: 065
  3. FENTANYL. [Suspect]
     Active Substance: FENTANYL
     Dosage: 12 UG, Q72H
     Route: 065
  4. PREGABALIN. [Concomitant]
     Active Substance: PREGABALIN
     Indication: BREAKTHROUGH PAIN
     Dosage: UNK
     Route: 065
  5. AFATINIB [Concomitant]
     Active Substance: AFATINIB
     Indication: EGFR GENE MUTATION
     Dosage: UNK
     Route: 065
  6. FENTANYL. [Suspect]
     Active Substance: FENTANYL
     Dosage: 200 UG, UNK
     Route: 045
  7. FENTANYL. [Suspect]
     Active Substance: FENTANYL
     Dosage: 25 UG, Q72H
     Route: 065
  8. DOCETAXEL. [Concomitant]
     Active Substance: DOCETAXEL
     Indication: ADENOCARCINOMA
     Dosage: 75 MG/M2, Q3W (EVERY 21 DAYS)
     Route: 065
     Dates: start: 201505
  9. DEXKETOPROFEN [Concomitant]
     Active Substance: DEXKETOPROFEN
     Indication: MUSCLE CONTRACTURE
     Dosage: UNK
     Route: 065
  10. PARACETAMOL [Suspect]
     Active Substance: ACETAMINOPHEN
     Indication: BREAKTHROUGH PAIN
     Dosage: UNK
     Route: 065
  11. FENTANYL. [Suspect]
     Active Substance: FENTANYL
     Indication: NECK PAIN
     Dosage: 100 UG, PRN (2 DAILY MAXIMUM)
     Route: 045
  12. NIVOLUMAB [Concomitant]
     Active Substance: NIVOLUMAB
     Indication: BREAKTHROUGH PAIN
     Dosage: 3 MG/KG, Q3W (21 DAYS)
     Route: 065
     Dates: start: 201508
  13. DIAZEPAM. [Concomitant]
     Active Substance: DIAZEPAM
     Indication: BREAKTHROUGH PAIN
     Dosage: UNK
     Route: 065
  14. PREGABALIN. [Concomitant]
     Active Substance: PREGABALIN
     Indication: NECK PAIN
     Dosage: 75 MG, QD
     Route: 065
  15. AFATINIB [Concomitant]
     Active Substance: AFATINIB
     Indication: ADENOCARCINOMA
     Dosage: 40 MG, QD
     Route: 065
  16. DEXKETOPROFEN [Concomitant]
     Active Substance: DEXKETOPROFEN
     Indication: NECK PAIN
     Dosage: UNK
     Route: 065
  17. FENTANYL. [Suspect]
     Active Substance: FENTANYL
     Indication: MUSCLE CONTRACTURE
     Dosage: 200 UG, UNK
     Route: 045
  18. DIAZEPAM. [Concomitant]
     Active Substance: DIAZEPAM
     Indication: NECK PAIN
     Dosage: UNK
     Route: 065
  19. FENTANYL. [Suspect]
     Active Substance: FENTANYL
     Indication: BREAKTHROUGH PAIN
     Dosage: 100 UG, UNK
     Route: 045
  20. DIAZEPAM. [Concomitant]
     Active Substance: DIAZEPAM
     Indication: MUSCLE CONTRACTURE
     Dosage: 5 MG, QD
     Route: 065
  21. DEXKETOPROFEN [Concomitant]
     Active Substance: DEXKETOPROFEN
     Indication: BREAKTHROUGH PAIN
     Dosage: 25 MG, Q8H
     Route: 065
     Dates: start: 2015
  22. FENTANYL. [Suspect]
     Active Substance: FENTANYL
     Dosage: 400 UG, PRN (3-4 DAILY)
     Route: 045
  23. FENTANYL. [Suspect]
     Active Substance: FENTANYL
     Dosage: 50 UG, Q72H
     Route: 065
  24. NIVOLUMAB [Concomitant]
     Active Substance: NIVOLUMAB
     Indication: NECK PAIN
     Dosage: UNK
     Route: 065
  25. PREGABALIN. [Concomitant]
     Active Substance: PREGABALIN
     Indication: MUSCLE CONTRACTURE
     Dosage: UNK
     Route: 065

REACTIONS (3)
  - Off label use [Recovered/Resolved]
  - Diarrhoea [Unknown]
  - Therapy naive [Recovered/Resolved]

NARRATIVE: CASE EVENT DATE: 2015
